FAERS Safety Report 15455407 (Version 2)
Quarter: 2021Q2

REPORT INFORMATION
  Report Type: Report from Study
  Country: US (occurrence: US)
  Receive Date: 20181002
  Receipt Date: 20210628
  Transmission Date: 20210716
  Serious: Yes (Hospitalization, Other)
  Sender: FDA-Public Use
  Company Number: US-NOVOPROD-612681

PATIENT
  Age: 76 Year
  Sex: Female

DRUGS (1)
  1. NOVOLIN 70/30 [Suspect]
     Active Substance: INSULIN HUMAN
     Indication: DIABETES MELLITUS
     Dosage: UNK
     Route: 058

REACTIONS (6)
  - Peripheral swelling [Unknown]
  - Localised infection [Recovered/Resolved with Sequelae]
  - Arthritis [Recovered/Resolved]
  - Limb prosthesis user [Not Recovered/Not Resolved]
  - Vascular injury [Unknown]
  - Blood glucose decreased [Unknown]

NARRATIVE: CASE EVENT DATE: 20210426
